FAERS Safety Report 5283379-0 (Version None)
Quarter: 2007Q1

REPORT INFORMATION
  Report Type: 
  Country: None (occurrence: None)
  Receive Date: 20070328
  Receipt Date: 20070328
  Transmission Date: 20070707
  Serious: Yes (Other)
  Sender: FDA-Public Use
  Company Number: None

PATIENT
  Sex: Female
  Weight: 57.1532 kg

DRUGS (4)
  1. GEODON [Suspect]
     Indication: DEPRESSION
     Dosage: 40MG  AM POSITIVE HS  PO
     Route: 048
     Dates: start: 20070307, end: 20070311
  2. GEODON [Suspect]
     Dosage: 20 MG  HS  PO
     Route: 048
     Dates: start: 20070306, end: 20070311
  3. TYLENOL [Concomitant]
  4. DIPHENHYDRAMINE HCL [Concomitant]

REACTIONS (1)
  - DYSTONIA [None]
